FAERS Safety Report 9229940 (Version 1)
Quarter: 2013Q2

REPORT INFORMATION
  Report Type: Spontaneous
  Country: US (occurrence: US)
  Receive Date: 20130415
  Receipt Date: 20130415
  Transmission Date: 20140414
  Serious: No
  Sender: FDA-Public Use
  Company Number: US-009507513-1304USA005117

PATIENT
  Sex: Male

DRUGS (5)
  1. JANUVIA [Suspect]
     Indication: TYPE 2 DIABETES MELLITUS
     Dosage: 100 MG, QD
     Route: 048
     Dates: start: 2010
  2. JANUVIA [Suspect]
     Dosage: 50 MG, QD BY SPLITTING 100MG TABLET
     Route: 048
  3. GLIPIZIDE [Concomitant]
     Dosage: SPLIT TABLET
  4. CARVEDILOL [Concomitant]
     Dosage: 25 MG, BID
  5. NIFEDIPINE [Concomitant]
     Dosage: SPLIT TABLET OF 90MG, PRN

REACTIONS (2)
  - Renal impairment [Unknown]
  - Wrong technique in drug usage process [Unknown]
